FAERS Safety Report 4526540-2 (Version None)
Quarter: 2004Q4

REPORT INFORMATION
  Report Type: 
  Country: None (occurrence: None)
  Receive Date: 20041210
  Receipt Date: 20040507
  Transmission Date: 20050328
  Serious: Yes (Hospitalization)
  Sender: FDA-Public Use
  Company Number: 2004UW09561

PATIENT
  Age: 57 Year
  Sex: Female
  Weight: 71.6683 kg

DRUGS (6)
  1. SEROQUEL [Suspect]
     Indication: DEPRESSION
     Dosage: 200 MG QD PO
     Route: 048
     Dates: start: 20040101
  2. SEROQUEL [Suspect]
     Indication: DEPRESSION
     Dosage: 100 MG QD PO
     Route: 048
     Dates: start: 20030701, end: 20040101
  3. TOPAMAX [Concomitant]
  4. ALPRAZOLAM [Concomitant]
  5. OXYCONTIN [Concomitant]
  6. CARISOPRODOL [Concomitant]

REACTIONS (4)
  - DISORIENTATION [None]
  - HALLUCINATIONS, MIXED [None]
  - SLEEP DISORDER [None]
  - SUICIDE ATTEMPT [None]
